FAERS Safety Report 8015864-2 (Version None)
Quarter: 2011Q4

REPORT INFORMATION
  Report Type: 
  Country: None (occurrence: None)
  Receive Date: 20111223
  Receipt Date: 20111213
  Transmission Date: 20120403
  Serious: Yes (Hospitalization)
  Sender: FDA-Public Use
  Company Number: DSJ-2011-26620

PATIENT
  Age: 7 Decade
  Sex: Male

DRUGS (4)
  1. METOPROLOL SUCCINATE [Concomitant]
  2. INSULIN (INSULIN) (INSULIN) [Concomitant]
  3. BENICAR [Suspect]
     Indication: HYPERTENSION
     Dosage: 40 MG (40 MG, 1 IN 1 D), PER ORAL
     Route: 048
     Dates: start: 20100101
  4. BENICAR HCT [Suspect]
     Indication: HYPERTENSION
     Dosage: 40/12.5 MG (1 IN 1 D), PER ORAL
     Route: 048

REACTIONS (4)
  - OVERDOSE [None]
  - ARTHROPOD INFESTATION [None]
  - LOCALISED INFECTION [None]
  - DRUG INEFFECTIVE [None]
